FAERS Safety Report 20706402 (Version 1)
Quarter: 2022Q2

REPORT INFORMATION
  Report Type: Spontaneous
  Country: US (occurrence: US)
  Receive Date: 20220413
  Receipt Date: 20220413
  Transmission Date: 20220721
  Serious: Yes (Hospitalization)
  Sender: FDA-Public Use
  Company Number: US-AZURITY PHARMACEUTICALS, INC.-US-2022ARB000920

PATIENT
  Age: 53 Year
  Sex: Male

DRUGS (1)
  1. AMLODIPINE [Suspect]
     Active Substance: AMLODIPINE BESYLATE
     Indication: Product used for unknown indication
     Dosage: 10 MILLIGRAM TABLETS X 100
     Route: 048

REACTIONS (5)
  - Pulmonary oedema [Unknown]
  - Acute respiratory failure [Unknown]
  - Toxicity to various agents [Unknown]
  - Intentional overdose [Unknown]
  - Hypotension [None]
